FAERS Safety Report 16917980 (Version 2)
Quarter: 2019Q4

REPORT INFORMATION
  Report Type: Spontaneous
  Country: GB (occurrence: GB)
  Receive Date: 20191015
  Receipt Date: 20191120
  Transmission Date: 20200122
  Serious: Yes (Hospitalization, Other)
  Sender: FDA-Public Use
  Company Number: GB-LUPIN PHARMACEUTICALS INC.-2019-06542

PATIENT
  Age: 57 Year
  Sex: Female

DRUGS (7)
  1. NOREPINEPHRINE. [Concomitant]
     Active Substance: NOREPINEPHRINE
     Indication: DEPRESSION
     Dosage: UNK
     Route: 065
  2. DULOXETINE. [Concomitant]
     Active Substance: DULOXETINE
     Indication: DEPRESSION
     Dosage: UNK
     Route: 065
  3. VENLAFAXINE [Concomitant]
     Active Substance: VENLAFAXINE HYDROCHLORIDE
     Indication: DEPRESSION
     Dosage: UNK
     Route: 065
  4. ESCITALOPRAM [Suspect]
     Active Substance: ESCITALOPRAM OXALATE
     Indication: DEPRESSION
     Dosage: 20 MILLIGRAM, QD
     Route: 048
     Dates: start: 20150327, end: 20150826
  5. PAROXETINE. [Concomitant]
     Active Substance: PAROXETINE
     Indication: DEPRESSION
     Dosage: UNK
     Route: 065
  6. SEROTONIN [Concomitant]
     Active Substance: SEROTONIN
     Indication: DEPRESSION
     Dosage: UNK
     Route: 065
  7. OLANZAPINE. [Interacting]
     Active Substance: OLANZAPINE
     Indication: DEPRESSION
     Dosage: 5 MILLIGRAM, QD
     Route: 048
     Dates: start: 20150407, end: 20150906

REACTIONS (3)
  - Suicidal ideation [Recovered/Resolved]
  - Drug interaction [Unknown]
  - Akathisia [Recovered/Resolved]

NARRATIVE: CASE EVENT DATE: 201507
